FAERS Safety Report 7310303-9 (Version None)
Quarter: 2011Q1

REPORT INFORMATION
  Report Type: 
  Country: None (occurrence: None)
  Receive Date: 20110224
  Receipt Date: 20110128
  Transmission Date: 20110831
  Serious: No
  Sender: FDA-Public Use
  Company Number: US-B.I. PHARMACEUTICALS,INC./RIDGEFIELD-2010-BP-15250BP

PATIENT
  Sex: Male

DRUGS (7)
  1. PRADAXA [Suspect]
     Indication: CEREBROVASCULAR ACCIDENT
     Dosage: 300 MG
     Route: 048
     Dates: start: 20101201
  2. PRADAXA [Suspect]
     Indication: ATRIAL FIBRILLATION
  3. PRAVASTATIN [Concomitant]
     Indication: BLOOD CHOLESTEROL INCREASED
  4. TYLENOL [Concomitant]
     Indication: HEADACHE
  5. DILTIAZEM [Concomitant]
     Indication: ATRIAL FIBRILLATION
     Dosage: 240 MG
  6. FENOFIBRATE [Concomitant]
     Dosage: 160 MG
  7. PHENOBARBITURATE [Concomitant]
     Indication: BLOOD TRIGLYCERIDES

REACTIONS (2)
  - CONSTIPATION [None]
  - EPISTAXIS [None]
